FAERS Safety Report 10934076 (Version 1)
Quarter: 2015Q1

REPORT INFORMATION
  Report Type: Spontaneous
  Country: US (occurrence: US)
  Receive Date: 20150320
  Receipt Date: 20150320
  Transmission Date: 20150721
  Serious: No
  Sender: FDA-Public Use
  Company Number: US-ASTRAZENECA-2015SE24228

PATIENT
  Sex: Male

DRUGS (2)
  1. SYMLIN [Suspect]
     Active Substance: PRAMLINTIDE ACETATE
     Indication: TYPE 2 DIABETES MELLITUS
     Dosage: 1 MG/2.7 ML 2 PEN PACK
     Route: 058
  2. HUMALOG QUIK PEN [Concomitant]
     Indication: TYPE 2 DIABETES MELLITUS
     Route: 058

REACTIONS (3)
  - Device misuse [Not Recovered/Not Resolved]
  - Drug dose omission [Not Recovered/Not Resolved]
  - Memory impairment [Not Recovered/Not Resolved]
